FAERS Safety Report 22588338 (Version 1)
Quarter: 2023Q2

REPORT INFORMATION
  Report Type: Spontaneous
  Country: US (occurrence: US)
  Receive Date: 20230612
  Receipt Date: 20230612
  Transmission Date: 20230721
  Serious: Yes (Life-Threatening, Hospitalization)
  Sender: FDA-Public Use
  Company Number: US-drreddys-LIT/USA/23/0166620

PATIENT
  Age: 39 Year
  Sex: Female

DRUGS (8)
  1. CLONIDINE [Interacting]
     Active Substance: CLONIDINE
     Indication: Anxiety
  2. BUPRENORPHINE HYDROCHLORIDE AND NALOXONE HYDROCHLORIDE [Suspect]
     Active Substance: BUPRENORPHINE HYDROCHLORIDE\NALOXONE HYDROCHLORIDE
     Indication: Anxiety
  3. LISDEXAMFETAMINE [Suspect]
     Active Substance: LISDEXAMFETAMINE
     Indication: Anxiety
  4. TRAZODONE [Suspect]
     Active Substance: TRAZODONE HYDROCHLORIDE
     Indication: Anxiety
  5. LEVONORGESTREL [Suspect]
     Active Substance: LEVONORGESTREL
     Indication: Anxiety
  6. BUPROPION [Interacting]
     Active Substance: BUPROPION
     Indication: Anxiety
  7. DESVENLAFAXINE [Interacting]
     Active Substance: DESVENLAFAXINE
     Indication: Product used for unknown indication
  8. YOHIMBINE [Interacting]
     Active Substance: YOHIMBINE
     Indication: Product used for unknown indication

REACTIONS (6)
  - Haemorrhage intracranial [Unknown]
  - Hypertensive emergency [Unknown]
  - Sympathomimetic effect [Unknown]
  - Condition aggravated [Unknown]
  - Drug interaction [Unknown]
  - Product use in unapproved indication [Unknown]
